FAERS Safety Report 9303384 (Version 1)
Quarter: 2013Q2

REPORT INFORMATION
  Report Type: Spontaneous
  Country: US (occurrence: None)
  Receive Date: 20130517
  Receipt Date: 20130531
  Transmission Date: 20140414
  Serious: Yes (Death, Life-Threatening)
  Sender: FDA-Public Use
  Company Number: US-011720

PATIENT
  Age: 89 Year
  Sex: Female
  Weight: 67.59 kg

DRUGS (10)
  1. PICO-SALAX (NOT SPECIFIED) [Suspect]
     Indication: BONE DISORDER
     Dosage: (FIRST DOSE AT 12:30, SECOND DOSE AT 19:00.)
     Dates: start: 20130509, end: 20130509
  2. OMEPRAZOLE [Concomitant]
  3. FOSAMAX [Concomitant]
  4. LISINOPRIL [Concomitant]
  5. SIMVASTATIN [Concomitant]
  6. ONDANSETRON [Suspect]
     Indication: PRODUCT USED FOR UNKNOWN INDICATION
     Route: 042
  7. ALENDRONATE [Concomitant]
  8. NATURAL VITAMIN C [Concomitant]
  9. CALCIUM WITH VITAMIN D [Concomitant]
  10. CENTRUM [Concomitant]

REACTIONS (5)
  - Malaise [None]
  - Convulsion [None]
  - Cardiac arrest [None]
  - Blood sodium decreased [None]
  - Blood potassium decreased [None]
